FAERS Safety Report 18069364 (Version 1)
Quarter: 2020Q3

REPORT INFORMATION
  Report Type: Spontaneous
  Country: GB (occurrence: GB)
  Receive Date: 20200725
  Receipt Date: 20200725
  Transmission Date: 20201103
  Serious: Yes (Other)
  Sender: FDA-Public Use
  Company Number: GB-ASCEND THERAPEUTICS US, LLC-2087746

PATIENT
  Age: 47 Year
  Sex: Female
  Weight: 57 kg

DRUGS (4)
  1. CLENIL MODULITE (BECLOMETASONE DIPROPIONATE), UNKNOWN?INDICATION FOR U [Concomitant]
     Route: 065
  2. ESTROGEL [Suspect]
     Active Substance: ESTRADIOL
  3. ESTROGEL [Suspect]
     Active Substance: ESTRADIOL
     Indication: MENOPAUSE
     Route: 062
     Dates: start: 20200505
  4. OESTROGEL (ESTRADIOL) (0.06 PERCENT) [Suspect]
     Active Substance: ESTRADIOL
     Route: 062
     Dates: start: 20200505

REACTIONS (11)
  - Mood swings [Unknown]
  - Insomnia [Unknown]
  - Depressed mood [Unknown]
  - Drug ineffective [Unknown]
  - Depression [Unknown]
  - Anxiety [Not Recovered/Not Resolved]
  - Night sweats [Unknown]
  - Product substitution issue [Unknown]
  - Metrorrhagia [Unknown]
  - Hot flush [Unknown]
  - Condition aggravated [Unknown]
